FAERS Safety Report 9325768 (Version 2)
Quarter: 2013Q4

REPORT INFORMATION
  Report Type: Spontaneous
  Country: AT (occurrence: AT)
  Receive Date: 20130604
  Receipt Date: 20131127
  Transmission Date: 20140711
  Serious: Yes (Death)
  Sender: FDA-Public Use
  Company Number: AT-ASTELLAS-2013US005793

PATIENT
  Age: 61 Year
  Sex: Female

DRUGS (5)
  1. AMBISOME [Suspect]
     Indication: ASPERGILLOMA
     Dosage: 5 MG/KG, UNKNOWN/D
     Route: 065
  2. FOSFOMYCIN [Concomitant]
     Indication: ASPERGILLOMA
     Dosage: 8 G, BID
     Route: 065
  3. CASPOFUNGIN [Concomitant]
     Indication: ASPERGILLOMA
     Dosage: 70 MG, TOTAL DOSE
     Route: 065
  4. CASPOFUNGIN [Concomitant]
     Dosage: 50 MG, UID/QD
     Route: 065
  5. VORICONAZOLE [Concomitant]
     Indication: ASPERGILLOMA
     Dosage: 200 MG, TID
     Route: 065

REACTIONS (1)
  - Drug ineffective [Fatal]
